FAERS Safety Report 8669630 (Version 3)
Quarter: 2012Q4

REPORT INFORMATION
  Report Type: 
  Country: DK (occurrence: DK)
  Receive Date: 20120718
  Receipt Date: 20120904
  Transmission Date: 20130627
  Serious: Yes (Death, Other)
  Sender: FDA-Public Use
  Company Number: DK-JNJFOC-20120706918

PATIENT
  Sex: Female

DRUGS (10)
  1. ETHINYLESTRADIOL/NORETHINDRONE [Suspect]
     Indication: CONTRACEPTION
     Dosage: 30-40 mcg ethinyl estradiol
     Route: 048
  2. NORGESTIMATE/ETHINYL ESTRADIOL [Suspect]
     Indication: CONTRACEPTION
     Dosage: 30-40 mcg ethinyl estradiol
     Route: 048
  3. DESOGESTREL/ETHINYL ESTRADIOL [Suspect]
     Indication: CONTRACEPTION
     Dosage: 30-40 mcg ethinyl estradiol
     Route: 048
  4. LEVONORGESTREL/ETHINYLESTRADIOL [Suspect]
     Indication: CONTRACEPTION
     Dosage: 30-40 mcg of ethinyl estradiol
     Route: 048
  5. DESOGESTREL ETHINYLESTRADIOL [Suspect]
     Indication: CONTRACEPTION
     Dosage: 20 mcg ethinyl estradiol
     Route: 048
  6. ETHINYLESTRADIOL/GESTODENE [Suspect]
     Indication: CONTRACEPTION
     Dosage: 30-40 mcg ethinylestradiol with gestodene
     Route: 048
  7. ETHINYLESTRADIOL/GESTODENE [Suspect]
     Indication: CONTRACEPTION
     Dosage: 20 mcg ethinylestradiol with gestodene
     Route: 048
  8. ETHINYLESTRADIOL DROSPIRENONE [Suspect]
     Indication: CONTRACEPTION
     Dosage: 30-40 mcg ethinylestradiol
     Route: 048
  9. UNSPECIFIED INGREDIENT [Suspect]
     Indication: CONTRACEPTION
     Route: 067
  10. PROGESTIN (PROGESTERONE) [Suspect]
     Indication: CONTRACEPTION
     Route: 048

REACTIONS (1)
  - Myocardial infarction [Fatal]
